FAERS Safety Report 6569212-5 (Version None)
Quarter: 2010Q1

REPORT INFORMATION
  Report Type: 
  Country: None (occurrence: None)
  Receive Date: 20100201
  Receipt Date: 20100201
  Transmission Date: 20100710
  Serious: No
  Sender: FDA-Public Use
  Company Number: None

PATIENT
  Age: 52 Year
  Sex: Male
  Weight: 104.3273 kg

DRUGS (5)
  1. ZICAM MATRIX/ZICAM LLC [Suspect]
     Indication: NASOPHARYNGITIS
     Dosage: TWO SQUIRTS 2-3 DAYS X 6 NASAL
     Route: 045
     Dates: start: 20081001, end: 20090415
  2. ZICAM MATRIX/ZICAM LLC [Suspect]
  3. FLONASE [Concomitant]
  4. SUDAFED 12 HOUR [Concomitant]
  5. OTC ANTIHISTAMINE/DECONGESTANTS [Concomitant]

REACTIONS (1)
  - ANOSMIA [None]
